FAERS Safety Report 17717868 (Version 2)
Quarter: 2020Q4

REPORT INFORMATION
  Report Type: Not Available
  Country: DE (occurrence: DE)
  Receive Date: 20200428
  Receipt Date: 20201202
  Transmission Date: 20210113
  Serious: Yes (Hospitalization, Other)
  Sender: FDA-Public Use
  Company Number: DE-SYNTHON BV-IN51PV20_53309

PATIENT
  Age: 70 Year
  Sex: Male

DRUGS (11)
  1. FAMPYRA [Suspect]
     Active Substance: DALFAMPRIDINE
     Dosage: 1-0-1, 10 MG, 0.5 DAYS
     Route: 065
  2. OCREVUS [Suspect]
     Active Substance: OCRELIZUMAB
     Dosage: 600 MILLIGRAM, 1
     Route: 042
     Dates: start: 20181126
  3. DOXEPIN [Suspect]
     Active Substance: DOXEPIN
     Dosage: 100 MG, 0-0-2, 1, 1 DAY
  4. AMANTADIN [AMANTADINE] [Suspect]
     Active Substance: AMANTADINE
     Dosage: 100 MILLIGRAM, 0.5 DAYS
     Route: 065
  5. LEVODOPA [Suspect]
     Active Substance: LEVODOPA
     Indication: PRODUCT USED FOR UNKNOWN INDICATION
     Dosage: 1 DAYS
     Route: 065
  6. NEUPRO [Suspect]
     Active Substance: ROTIGOTINE
     Indication: PRODUCT USED FOR UNKNOWN INDICATION
     Dosage: 24H PLASTER
     Route: 065
  7. TAMSULOSIN [Suspect]
     Active Substance: TAMSULOSIN
     Indication: PRODUCT USED FOR UNKNOWN INDICATION
     Dosage: 0.4 MILLIGRAM, 1, 1 DAY
     Route: 065
  8. DOXEPIN [Suspect]
     Active Substance: DOXEPIN
     Indication: PRODUCT USED FOR UNKNOWN INDICATION
     Dosage: 50 MG 1/1 DAY
     Route: 065
  9. FAMPYRA [Suspect]
     Active Substance: DALFAMPRIDINE
     Indication: PRODUCT USED FOR UNKNOWN INDICATION
     Dosage: 1-0-1, 1 DF, 2, 1 DAY
     Route: 065
  10. OCREVUS [Suspect]
     Active Substance: OCRELIZUMAB
     Indication: PRIMARY PROGRESSIVE MULTIPLE SCLEROSIS
     Dosage: 300 MILLIGRAM, 1
     Route: 042
     Dates: start: 20180613
  11. AMANTADIN [AMANTADINE] [Suspect]
     Active Substance: AMANTADINE
     Indication: PRODUCT USED FOR UNKNOWN INDICATION
     Dosage: 200 MILLIGRAM, 1, 1 DAY
     Route: 065

REACTIONS (8)
  - Headache [Recovered/Resolved]
  - Initial insomnia [Recovered/Resolved]
  - Bladder cyst [Not Recovered/Not Resolved]
  - Fall [Recovered/Resolved]
  - Peroneal nerve palsy [Recovered/Resolved]
  - Pain in extremity [Recovered/Resolved]
  - Gallbladder cancer [Not Recovered/Not Resolved]
  - Bladder cancer [Not Recovered/Not Resolved]

NARRATIVE: CASE EVENT DATE: 20180613
